FAERS Safety Report 23988773 (Version 4)
Quarter: 2025Q1

REPORT INFORMATION
  Report Type: Spontaneous
  Country: CA (occurrence: CA)
  Receive Date: 20240619
  Receipt Date: 20250205
  Transmission Date: 20250408
  Serious: Yes (Other)
  Sender: CELLTRION
  Company Number: CA-PFIZER INC-202400090064

PATIENT

DRUGS (6)
  1. INFLECTRA [Suspect]
     Active Substance: INFLIXIMAB-DYYB
     Indication: Crohn^s disease
     Route: 042
     Dates: start: 20240304
  2. INFLECTRA [Suspect]
     Active Substance: INFLIXIMAB-DYYB
     Route: 042
     Dates: start: 20240416
  3. INFLECTRA [Suspect]
     Active Substance: INFLIXIMAB-DYYB
     Route: 042
     Dates: start: 20240611
  4. INFLECTRA [Suspect]
     Active Substance: INFLIXIMAB-DYYB
     Route: 042
     Dates: start: 20250121
  5. ENTOCORT [Concomitant]
     Active Substance: BUDESONIDE
  6. PENTASA [Concomitant]
     Active Substance: MESALAMINE

REACTIONS (4)
  - Ileal ulcer [Unknown]
  - Arterial occlusive disease [Recovered/Resolved]
  - Drug level above therapeutic [Unknown]
  - Enteritis [Unknown]

NARRATIVE: CASE EVENT DATE: 20240601
